FAERS Safety Report 17498405 (Version 2)
Quarter: 2020Q2

REPORT INFORMATION
  Report Type: Spontaneous
  Country: FR (occurrence: FR)
  Receive Date: 20200304
  Receipt Date: 20200406
  Transmission Date: 20200713
  Serious: Yes (Hospitalization, Other)
  Sender: FDA-Public Use
  Company Number: FR-ASTRAZENECA-2020SE24772

PATIENT
  Age: 25283 Day
  Sex: Male
  Weight: 85 kg

DRUGS (25)
  1. IMFINZI [Suspect]
     Active Substance: DURVALUMAB
     Indication: SQUAMOUS CELL CARCINOMA OF LUNG
     Route: 042
     Dates: start: 20191113
  2. IMFINZI [Suspect]
     Active Substance: DURVALUMAB
     Indication: BRONCHIAL CARCINOMA
     Route: 042
     Dates: start: 20191002
  3. IMFINZI [Suspect]
     Active Substance: DURVALUMAB
     Indication: SQUAMOUS CELL CARCINOMA OF LUNG
     Route: 042
     Dates: start: 20190918
  4. ATORVASTATINE [Concomitant]
     Active Substance: ATORVASTATIN
     Indication: MYOCARDIAL ISCHAEMIA
  5. CARBOPLATIN. [Concomitant]
     Active Substance: CARBOPLATIN
  6. IMFINZI [Suspect]
     Active Substance: DURVALUMAB
     Indication: BRONCHIAL CARCINOMA
     Route: 042
     Dates: start: 20191113
  7. KARDEGIC [Concomitant]
     Active Substance: ASPIRIN DL-LYSINE
     Indication: MYOCARDIAL ISCHAEMIA
  8. BISOPROLOL [Concomitant]
     Active Substance: BISOPROLOL
     Indication: MYOCARDIAL ISCHAEMIA
  9. NOVORAPID [Concomitant]
     Active Substance: INSULIN ASPART
  10. XATRAL SR [Concomitant]
     Active Substance: ALFUZOSIN
  11. IMFINZI [Suspect]
     Active Substance: DURVALUMAB
     Indication: SQUAMOUS CELL CARCINOMA OF LUNG
     Route: 042
     Dates: start: 20191030
  12. CELLCEPT [Concomitant]
     Active Substance: MYCOPHENOLATE MOFETIL\MYCOPHENOLATE MOFETIL HYDROCHLORIDE
     Route: 065
  13. CORTICOSTEROIDS [Concomitant]
     Active Substance: CORTICOSTEROID NOS
     Route: 065
  14. JANUMET [Concomitant]
     Active Substance: METFORMIN HYDROCHLORIDE\SITAGLIPTIN PHOSPHATE
  15. IMFINZI [Suspect]
     Active Substance: DURVALUMAB
     Indication: SQUAMOUS CELL CARCINOMA OF LUNG
     Route: 042
     Dates: start: 20191016
  16. IMFINZI [Suspect]
     Active Substance: DURVALUMAB
     Indication: SQUAMOUS CELL CARCINOMA OF LUNG
     Route: 042
     Dates: start: 20191002
  17. PACLITAXEL. [Concomitant]
     Active Substance: PACLITAXEL
  18. IMFINZI [Suspect]
     Active Substance: DURVALUMAB
     Indication: BRONCHIAL CARCINOMA
     Route: 042
     Dates: start: 20191030
  19. IMFINZI [Suspect]
     Active Substance: DURVALUMAB
     Indication: BRONCHIAL CARCINOMA
     Route: 042
     Dates: start: 20191016
  20. PREDNISONE. [Concomitant]
     Active Substance: PREDNISONE
  21. RAMIPRIL. [Concomitant]
     Active Substance: RAMIPRIL
     Indication: MYOCARDIAL ISCHAEMIA
  22. ESOMEPRAZOLE. [Concomitant]
     Active Substance: ESOMEPRAZOLE MAGNESIUM
  23. IMFINZI [Suspect]
     Active Substance: DURVALUMAB
     Indication: BRONCHIAL CARCINOMA
     Route: 042
     Dates: start: 20190918
  24. PRAXILENE [Concomitant]
     Active Substance: NAFRONYL
     Indication: MYOCARDIAL ISCHAEMIA
  25. TOUJEO [Concomitant]
     Active Substance: INSULIN GLARGINE

REACTIONS (3)
  - Myositis [Recovering/Resolving]
  - Syncope [Unknown]
  - Myocarditis [Recovering/Resolving]

NARRATIVE: CASE EVENT DATE: 20191002
